FAERS Safety Report 21436223 (Version 4)
Quarter: 2022Q4

REPORT INFORMATION
  Report Type: Report from Study
  Country: CN (occurrence: CN)
  Receive Date: 20221010
  Receipt Date: 20221019
  Transmission Date: 20230113
  Serious: Yes (Hospitalization)
  Sender: FDA-Public Use
  Company Number: CN-PHARMAESSENTIA-CN-2022-PEC-000831

PATIENT

DRUGS (3)
  1. ROPEGINTERFERON ALFA-2B [Suspect]
     Active Substance: ROPEGINTERFERON ALFA-2B
     Indication: Polycythaemia vera
     Dosage: 250 MICROGRAM, 2W
     Route: 065
     Dates: start: 20220311, end: 20220311
  2. ROPEGINTERFERON ALFA-2B [Suspect]
     Active Substance: ROPEGINTERFERON ALFA-2B
     Dosage: 350 MICROGRAM, 2W
     Route: 065
     Dates: start: 20220323, end: 20220323
  3. ROPEGINTERFERON ALFA-2B [Suspect]
     Active Substance: ROPEGINTERFERON ALFA-2B
     Dosage: 500 MICROGRAM, 2W
     Route: 065
     Dates: start: 20220406

REACTIONS (1)
  - Myasthenia gravis [Recovering/Resolving]

NARRATIVE: CASE EVENT DATE: 20220825
